FAERS Safety Report 21530762 (Version 1)
Quarter: 2022Q4

REPORT INFORMATION
  Report Type: Spontaneous
  Country: US (occurrence: None)
  Receive Date: 20221028
  Receipt Date: 20221028
  Transmission Date: 20230113
  Serious: Yes (Hospitalization)
  Sender: FDA-Public Use
  Company Number: None

PATIENT
  Sex: Female

DRUGS (1)
  1. TOBRAMYCIN INHALATION SOLUTION [Suspect]
     Active Substance: TOBRAMYCIN
     Indication: Chronic obstructive pulmonary disease
     Dosage: OTHER FREQUENCY : 28 D ON, 28 D OFF;?TWICE DAILY FOR 28 DAYS ON, THEN 28 DAYS OFF
     Route: 055

REACTIONS (1)
  - Chronic obstructive pulmonary disease [None]
